FAERS Safety Report 24978062 (Version 1)
Quarter: 2025Q1

REPORT INFORMATION
  Report Type: Spontaneous
  Country: US (occurrence: US)
  Receive Date: 20250217
  Receipt Date: 20250217
  Transmission Date: 20250409
  Serious: No
  Sender: LUNDBECK
  Company Number: US-LUNDBECK-DKLU4010431

PATIENT
  Age: 7 Year
  Sex: Female

DRUGS (2)
  1. ONFI [Suspect]
     Active Substance: CLOBAZAM
     Indication: Product used for unknown indication
  2. CLONAZEPAM [Suspect]
     Active Substance: CLONAZEPAM
     Indication: Product used for unknown indication

REACTIONS (2)
  - Coordination abnormal [Recovering/Resolving]
  - Communication disorder [Recovering/Resolving]
